FAERS Safety Report 16926601 (Version 1)
Quarter: 2019Q4

REPORT INFORMATION
  Report Type: Spontaneous
  Country: US (occurrence: US)
  Receive Date: 20191016
  Receipt Date: 20191016
  Transmission Date: 20200122
  Serious: No
  Sender: FDA-Public Use
  Company Number: US-SA-2019SA284564

PATIENT
  Sex: Male

DRUGS (1)
  1. DUPIXENT [Suspect]
     Active Substance: DUPILUMAB
     Indication: DERMATITIS ATOPIC
     Dosage: 300 MG, QOW
     Route: 058

REACTIONS (7)
  - Oropharyngeal pain [Recovering/Resolving]
  - Headache [Recovering/Resolving]
  - Chills [Recovering/Resolving]
  - Pain [Recovering/Resolving]
  - Candida infection [Recovering/Resolving]
  - Influenza like illness [Recovering/Resolving]
  - Fatigue [Recovering/Resolving]
